FAERS Safety Report 7652315-1 (Version None)
Quarter: 2011Q3

REPORT INFORMATION
  Report Type: 
  Country: None (occurrence: None)
  Receive Date: 20110803
  Receipt Date: 20110728
  Transmission Date: 20111222
  Serious: Yes (Other)
  Sender: FDA-Public Use
  Company Number: US-PFIZER INC-2011173175

PATIENT
  Age: 9 Year
  Sex: Female

DRUGS (3)
  1. FLUCONAZOLE [Suspect]
     Indication: VULVOVAGINAL CANDIDIASIS
     Dosage: 100 MG, UNK
     Route: 048
     Dates: start: 20090721, end: 20090726
  2. FLUTICASONE [Interacting]
     Dosage: 110 UG/ACTUATION, 2 PUFFS DAILY VIA SPACER
     Route: 055
     Dates: start: 20090602
  3. FLUTICASONE [Interacting]
     Dosage: 220 UG/ACTUATION, 2 PUFFS TWICE DAILY
     Dates: start: 20090630, end: 20090925

REACTIONS (2)
  - CUSHING'S SYNDROME [None]
  - DRUG INTERACTION [None]
